FAERS Safety Report 14734166 (Version 6)
Quarter: 2018Q2

REPORT INFORMATION
  Report Type: Report from Study
  Country: US (occurrence: US)
  Receive Date: 20180409
  Receipt Date: 20180524
  Transmission Date: 20180711
  Serious: Yes (Death, Hospitalization, Other)
  Sender: FDA-Public Use
  Company Number: US-GILEAD-2018-0330796

PATIENT
  Age: 10 Month
  Sex: Male
  Weight: 8.4 kg

DRUGS (5)
  1. REVATIO [Concomitant]
     Active Substance: SILDENAFIL CITRATE
  2. AMBRISENTAN [Suspect]
     Active Substance: AMBRISENTAN
     Indication: CHRONIC RESPIRATORY DISEASE
     Dosage: 1 MG, UNK
     Route: 051
  3. AMBRISENTAN [Suspect]
     Active Substance: AMBRISENTAN
     Indication: PULMONARY HYPERTENSION
     Dosage: 5 MG, QD
     Route: 050
     Dates: start: 20171206
  4. AMBRISENTAN [Suspect]
     Active Substance: AMBRISENTAN
     Dosage: UNK
     Route: 065
  5. AMBRISENTAN [Suspect]
     Active Substance: AMBRISENTAN
     Indication: TRISOMY 21
     Dosage: 2.5 MG, QD
     Route: 051

REACTIONS (7)
  - Haemophilus infection [Fatal]
  - Off label use [Not Recovered/Not Resolved]
  - Acute respiratory failure [Unknown]
  - Pneumonia [Fatal]
  - Acute respiratory distress syndrome [Fatal]
  - Lung disorder [Unknown]
  - Liver disorder [Unknown]

NARRATIVE: CASE EVENT DATE: 20171206
